FAERS Safety Report 7314900-6 (Version None)
Quarter: 2011Q1

REPORT INFORMATION
  Report Type: 
  Country: None (occurrence: None)
  Receive Date: 20110225
  Receipt Date: 20100209
  Transmission Date: 20110831
  Serious: No
  Sender: FDA-Public Use
  Company Number: US-MYLANLABS-2010S1001162

PATIENT
  Age: 16 Year
  Sex: Male
  Weight: 57 kg

DRUGS (2)
  1. AMNESTEEM [Suspect]
     Indication: ACNE CYSTIC
     Route: 048
     Dates: end: 20091222
  2. CLARAVIS [Suspect]
     Indication: ACNE CYSTIC
     Route: 048

REACTIONS (4)
  - MYALGIA [None]
  - ECZEMA [None]
  - DRY SKIN [None]
  - ACNE [None]
